FAERS Safety Report 9524307 (Version 1)
Quarter: 2013Q1

REPORT INFORMATION
  Report Type: Spontaneous
  Country: US (occurrence: None)
  Receive Date: 20130313
  Receipt Date: 20130313
  Transmission Date: 20140127
  Serious: No
  Sender: FDA-Public Use
  Company Number: 1000037651

PATIENT
  Age: 27 Year
  Sex: Female

DRUGS (1)
  1. SAVELLA [Suspect]
     Indication: FIBROMYALGIA
     Dosage: 12.5 MG (12.5 MG, 1 IN 1 D), ORAL
     Route: 048
     Dates: start: 2012, end: 201208

REACTIONS (5)
  - Maternal exposure during pregnancy [None]
  - Headache [None]
  - Hyperhidrosis [None]
  - Nausea [None]
  - Vomiting [None]
